FAERS Safety Report 19201472 (Version 1)
Quarter: 2021Q2

REPORT INFORMATION
  Report Type: Spontaneous
  Country: US (occurrence: US)
  Receive Date: 20210430
  Receipt Date: 20210430
  Transmission Date: 20210717
  Serious: Yes (Other)
  Sender: FDA-Public Use
  Company Number: US-GW PHARMA-202104USGW02033

PATIENT

DRUGS (1)
  1. EPIDIOLEX [Suspect]
     Active Substance: CANNABIDIOL
     Indication: PRODUCT USED FOR UNKNOWN INDICATION
     Dosage: 500 MILLIGRAM, QD (200 MG IN THE AM AND 300 MG IN THE PM)
     Route: 065
     Dates: start: 20201203, end: 20210421

REACTIONS (2)
  - Drug ineffective [Unknown]
  - Seizure [Recovered/Resolved with Sequelae]
